FAERS Safety Report 24018219 (Version 1)
Quarter: 2024Q2

REPORT INFORMATION
  Report Type: Spontaneous
  Country: NO (occurrence: NO)
  Receive Date: 20240627
  Receipt Date: 20240627
  Transmission Date: 20240715
  Serious: Yes (Hospitalization, Other)
  Sender: FDA-Public Use
  Company Number: None

PATIENT
  Age: 26 Year
  Sex: Female

DRUGS (14)
  1. METRONIDAZOLE [Interacting]
     Active Substance: METRONIDAZOLE
     Indication: Infection
     Dosage: (ADDITIONAL INFORMATION ON DRUG: J01XD01 - METRONIDAZOLE), 1 G (GRAM) IN 1 D (DAY), (DOSAGE FORM: SO
     Route: 042
     Dates: start: 20240521, end: 20240526
  2. ISOFLURANE [Interacting]
     Active Substance: ISOFLURANE
     Indication: Sedation
     Dosage: (ADDITIONAL INFORMATION ON DRUG: N01AB06 - ISOFLURAN), (DOSAGE TEXT: END-TIDAL CONCENTRATION IN %: 1
     Route: 055
     Dates: start: 20240525, end: 20240526
  3. METOCLOPRAMIDE HYDROCHLORIDE [Interacting]
     Active Substance: METOCLOPRAMIDE HYDROCHLORIDE
     Dosage: (ADDITIONAL INFORMATION ON DRUG: A03FA01 - METOCLOPRAMIDE), 10 MG (MILLIGRAM) IN 8 H (HOURS), (DOSAG
     Route: 030
     Dates: start: 20240525, end: 20240526
  4. METOCLOPRAMIDE HYDROCHLORIDE [Interacting]
     Active Substance: METOCLOPRAMIDE HYDROCHLORIDE
     Dosage: (ADDITIONAL INFORMATION ON DRUG: A03FA01 - METOCLOPRAMIDE), 10 MG (MILLIGRAM) IN 8 H (HOURS), (DOSAG
     Route: 042
     Dates: start: 20240525, end: 20240526
  5. CLONIDINE [Interacting]
     Active Substance: CLONIDINE
     Dosage: (ADDITIONAL INFORMATION ON DRUG: N02CX02 - CLONIDINE), (DOSAGE TEXT: 30 MCG/ML, 1.3 MCG/KG/HOUR)
     Route: 048
     Dates: start: 20240524, end: 20240526
  6. ANAFRANIL [Interacting]
     Active Substance: CLOMIPRAMINE HYDROCHLORIDE
     Indication: Anxiety
     Dosage: (ADDITIONAL INFORMATION ON DRUG: N06AA04 - CLOMIPRAMINE), 100 MG (MILLIGRAM) IN 12 H (HOURS), (DOSAG
     Route: 048
  7. SEROQUEL [Interacting]
     Active Substance: QUETIAPINE FUMARATE
     Dosage: (ADDITIONAL INFORMATION ON DRUG: N05AH04 - QUETIAPINE), (DOSAGE TEXT: 300 MG MORNING AND 400 MG EVEN
     Route: 048
  8. ERYTHROCIN LACTOBIONATE [Interacting]
     Active Substance: ERYTHROMYCIN LACTOBIONATE
     Dosage: (ADDITIONAL INFORMATION ON DRUG: J01FA01 - ERYTHROMYCIN), 200 MG (MILLIGRAM) IN 1 DAY, (DOSAGE TEXT:
     Route: 042
     Dates: start: 20240524, end: 20240524
  9. BACTRIM [Interacting]
     Active Substance: SULFAMETHOXAZOLE\TRIMETHOPRIM
     Indication: Infection
     Dosage: (ADDITIONAL INFORMATION ON DRUG: SULFAMETHOXAZOLE AND TRIMETHOPRIM), (DOSAGE TEXT: 800MG/160 MG X 2)
     Route: 042
     Dates: start: 20240523, end: 20240526
  10. NOREPINEPHRINE\NOREPINEPHRINE BITARTRATE [Concomitant]
     Active Substance: NOREPINEPHRINE\NOREPINEPHRINE BITARTRATE
     Dosage: (ADDITIONAL INFORMATION ON DRUG: C01CA03 - NORADRENALIN)
     Route: 065
  11. ENOXAPARIN [Concomitant]
     Active Substance: ENOXAPARIN
     Indication: Prophylaxis
     Dosage: (ADDITIONAL INFORMATION ON DRUG: B01AB05 - ENOXAPARIN), 20 MG (MILLIGRAM) IN 1 DAY, (DOSAGE TEXT: 20
     Route: 065
  12. VANCOMYCIN HYDROCHLORIDE [Concomitant]
     Active Substance: VANCOMYCIN HYDROCHLORIDE
     Indication: Infection
     Dosage: (ADDITIONAL INFORMATION ON DRUG: J01XA01 - VANCOMYCIN), 125 MG (MILLIGRAM) IN 6 H (HOURS), (DOSAGE T
     Route: 065
  13. PANTOPRAZOLE SODIUM [Concomitant]
     Active Substance: PANTOPRAZOLE SODIUM
     Dosage: (ADDITIONAL INFORMATION ON DRUG: A02BC02 - PANTOPRAZOLE), 40 MG (MILLIGRAM) IN 12 H (HOURS), (DOSAGE
     Route: 065
  14. ACETAMINOPHEN [Concomitant]
     Active Substance: ACETAMINOPHEN
     Dosage: (ADDITIONAL INFORMATION ON DRUG: N02BE01 - PARACETAMOL)
     Route: 065

REACTIONS (1)
  - Torsade de pointes [Unknown]

NARRATIVE: CASE EVENT DATE: 20240526
